FAERS Safety Report 7007140-1 (Version None)
Quarter: 2010Q3

REPORT INFORMATION
  Report Type: 
  Country: None (occurrence: None)
  Receive Date: 20100913
  Receipt Date: 20100907
  Transmission Date: 20110219
  Serious: Yes (Disabling, Other)
  Sender: FDA-Public Use
  Company Number: 2010SP047786

PATIENT
  Sex: Female

DRUGS (1)
  1. AVANZA SOLTAB (MIRTAZAPINE /01293201/) [Suspect]
     Indication: PRODUCT USED FOR UNKNOWN INDICATION

REACTIONS (4)
  - LOSS OF CONSCIOUSNESS [None]
  - PRODUCT FORMULATION ISSUE [None]
  - PRODUCT PACKAGING ISSUE [None]
  - PRODUCT SIZE ISSUE [None]
